FAERS Safety Report 9398556 (Version 1)
Quarter: 2013Q3

REPORT INFORMATION
  Report Type: Spontaneous
  Country: US (occurrence: US)
  Receive Date: 20130712
  Receipt Date: 20130712
  Transmission Date: 20140515
  Serious: Yes (Hospitalization)
  Sender: FDA-Public Use
  Company Number: US-BRISTOL-MYERS SQUIBB COMPANY-19088483

PATIENT
  Age: 67 Year
  Sex: Female
  Weight: 54.42 kg

DRUGS (1)
  1. COUMADIN [Suspect]

REACTIONS (1)
  - Cerebrovascular accident [Unknown]
